FAERS Safety Report 22219097 (Version 2)
Quarter: 2023Q2

REPORT INFORMATION
  Report Type: Spontaneous
  Country: CA (occurrence: CA)
  Receive Date: 20230417
  Receipt Date: 20230421
  Transmission Date: 20230721
  Serious: Yes (Death, Congenital Anomaly, Other)
  Sender: FDA-Public Use
  Company Number: CA-ORGANON-O2304CAN001225

PATIENT
  Age: 5 Day
  Sex: Female

DRUGS (8)
  1. COZAAR [Suspect]
     Active Substance: LOSARTAN POTASSIUM
     Indication: Peripartum cardiomyopathy
     Dosage: UNK
     Route: 064
  2. COZAAR [Suspect]
     Active Substance: LOSARTAN POTASSIUM
     Indication: Hypertension
     Dosage: UNK
     Route: 065
  3. PERINDOPRIL [Suspect]
     Active Substance: PERINDOPRIL
     Indication: Peripartum cardiomyopathy
     Dosage: UNK, (DOSAGE FORM: NOT SPECIFIED)
     Route: 064
  4. PERINDOPRIL [Suspect]
     Active Substance: PERINDOPRIL
     Indication: Hypertension
     Dosage: UNK
     Route: 065
  5. LASIX [Concomitant]
     Active Substance: FUROSEMIDE
     Indication: Product used for unknown indication
     Dosage: UNK
     Route: 064
  6. LASIX [Concomitant]
     Active Substance: FUROSEMIDE
     Dosage: UNK,(DOSAGE FORM:NOT SPECIFIED)
     Route: 065
  7. SPIRONOLACTONE [Concomitant]
     Active Substance: SPIRONOLACTONE
     Indication: Product used for unknown indication
     Dosage: UNK
     Route: 064
  8. SPIRONOLACTONE [Concomitant]
     Active Substance: SPIRONOLACTONE
     Dosage: UNK
     Route: 065

REACTIONS (13)
  - Angiotensin converting enzyme inhibitor foetopathy [Fatal]
  - Anuria [Fatal]
  - Foetal exposure during pregnancy [Fatal]
  - Foetal malformation [Fatal]
  - Gingival disorder [Fatal]
  - Hypocalvaria [Fatal]
  - Hypotension [Fatal]
  - Limb deformity [Fatal]
  - Polyuria [Fatal]
  - Potter^s syndrome [Fatal]
  - Renal aplasia [Fatal]
  - Respiratory failure [Fatal]
  - Exposure during pregnancy [Fatal]
